FAERS Safety Report 4837037-4 (Version None)
Quarter: 2005Q4

REPORT INFORMATION
  Report Type: 
  Country: None (occurrence: None)
  Receive Date: 20051125
  Receipt Date: 20051110
  Transmission Date: 20060501
  Serious: Yes (Hospitalization)
  Sender: FDA-Public Use
  Company Number: PHRM2005FR02951

PATIENT
  Age: 73 Year
  Sex: Male

DRUGS (9)
  1. ZOMETA [Suspect]
     Indication: METASTASES TO BONE
     Dosage: 3.5 MG, QMO
     Route: 042
     Dates: start: 20050526
  2. TAXOTERE [Suspect]
     Indication: METASTASES TO BONE
     Dosage: 30 MG/KG/M2 WEEKLY
     Route: 042
     Dates: start: 20050501
  3. HYZAAR [Concomitant]
     Dosage: 50 MG DAILY
  4. CORVASAL [Concomitant]
     Dosage: 2 MG, TID
  5. SOTALOL HCL [Concomitant]
     Dosage: 40 MG, BID
  6. PLAVIX [Concomitant]
     Dosage: 75 MG, QD
  7. ALLOPURINOL [Concomitant]
     Dosage: 200 MG DAILY
  8. LEVOTHYROX [Concomitant]
     Dosage: 150 A?G DAILY
  9. DIAMICRON [Concomitant]
     Dosage: 2 DF DAILY

REACTIONS (17)
  - ANURIA [None]
  - BLOOD CREATINE PHOSPHOKINASE INCREASED [None]
  - BLOOD CREATININE INCREASED [None]
  - BLOOD LACTATE DEHYDROGENASE INCREASED [None]
  - BLOOD UREA INCREASED [None]
  - CREATININE RENAL CLEARANCE INCREASED [None]
  - DEPRESSED LEVEL OF CONSCIOUSNESS [None]
  - DIALYSIS [None]
  - DISORIENTATION [None]
  - GENERAL PHYSICAL HEALTH DETERIORATION [None]
  - HAEMOGLOBIN DECREASED [None]
  - HAEMOLYTIC URAEMIC SYNDROME [None]
  - HYPERKALAEMIA [None]
  - LEUKOPENIA [None]
  - MICROANGIOPATHY [None]
  - PALLOR [None]
  - PLATELET COUNT DECREASED [None]
